FAERS Safety Report 19477722 (Version 1)
Quarter: 2021Q2

REPORT INFORMATION
  Report Type: Spontaneous
  Country: US (occurrence: US)
  Receive Date: 20210630
  Receipt Date: 20210630
  Transmission Date: 20210717
  Serious: Yes (Other)
  Sender: FDA-Public Use
  Company Number: None

PATIENT
  Age: 34 Year
  Sex: Female
  Weight: 52.62 kg

DRUGS (5)
  1. IMITREX [Concomitant]
     Active Substance: SUMATRIPTAN SUCCINATE
  2. MULTIVITAMIN [Concomitant]
     Active Substance: VITAMINS
  3. ZOFRAN [Concomitant]
     Active Substance: ONDANSETRON HYDROCHLORIDE
  4. KYLEENA [Suspect]
     Active Substance: LEVONORGESTREL
  5. EFFEXOR XR [Concomitant]
     Active Substance: VENLAFAXINE HYDROCHLORIDE

REACTIONS (3)
  - Vaginal haemorrhage [None]
  - Abortion spontaneous [None]
  - Pregnancy with contraceptive device [None]

NARRATIVE: CASE EVENT DATE: 20210629
